FAERS Safety Report 24742665 (Version 1)
Quarter: 2024Q4

REPORT INFORMATION
  Report Type: Spontaneous
  Country: US (occurrence: None)
  Receive Date: 20241216
  Receipt Date: 20241216
  Transmission Date: 20250115
  Serious: Yes (Hospitalization)
  Sender: Public
  Company Number: None

PATIENT
  Age: 81 Year
  Sex: Female

DRUGS (11)
  1. UDENYCA [Suspect]
     Active Substance: PEGFILGRASTIM-CBQV
     Indication: Breast cancer
     Dosage: OTHER FREQUENCY : ONDAY2OFCHEMOEVERY21DAYS;?
     Route: 058
     Dates: start: 20241126
  2. ACYCLOVIR [Concomitant]
     Active Substance: ACYCLOVIR
  3. AMLODIPINE [Concomitant]
     Active Substance: AMLODIPINE BESYLATE
  4. ATORVASTATIN [Concomitant]
     Active Substance: ATORVASTATIN
  5. DULOXETINE [Concomitant]
     Active Substance: DULOXETINE
  6. duloxetine dr 60mg [Concomitant]
  7. ELIQUIS [Concomitant]
     Active Substance: APIXABAN
  8. FERROUS SULFATE [Concomitant]
     Active Substance: FERROUS SULFATE
  9. fioricet 50/325/40mg [Concomitant]
  10. LORATADINE [Concomitant]
     Active Substance: LORATADINE
  11. LOSARTAN [Concomitant]
     Active Substance: LOSARTAN

REACTIONS (1)
  - Fatigue [None]

NARRATIVE: CASE EVENT DATE: 20241129
